FAERS Safety Report 6386717-0 (Version None)
Quarter: 2009Q3

REPORT INFORMATION
  Report Type: 
  Country: None (occurrence: None)
  Receive Date: 20090930
  Receipt Date: 20090930
  Transmission Date: 20100115
  Serious: Yes (Life-Threatening, Hospitalization)
  Sender: FDA-Public Use
  Company Number: None

PATIENT
  Age: 71 Year
  Sex: Male
  Weight: 107.4 kg

DRUGS (1)
  1. DIPYRIDAMOLE [Suspect]
     Indication: CARDIAC STRESS TEST
     Dosage: 60 MG ONCE IV
     Route: 042
     Dates: start: 20090910, end: 20090910

REACTIONS (7)
  - BLOOD PRESSURE INCREASED [None]
  - BRONCHOSPASM [None]
  - COLD SWEAT [None]
  - CYANOSIS CENTRAL [None]
  - RESPIRATORY ARREST [None]
  - UNRESPONSIVE TO STIMULI [None]
  - WHEEZING [None]
